FAERS Safety Report 24370797 (Version 2)
Quarter: 2024Q4

REPORT INFORMATION
  Report Type: Spontaneous
  Country: US (occurrence: US)
  Receive Date: 20240927
  Receipt Date: 20241004
  Transmission Date: 20250114
  Serious: No
  Sender: JOHNSON AND JOHNSON
  Company Number: US-JNJFOC-20240958398

PATIENT
  Sex: Male

DRUGS (2)
  1. SPRAVATO [Suspect]
     Active Substance: ESKETAMINE
     Indication: Depression
  2. LORATADINE [Concomitant]
     Active Substance: LORATADINE

REACTIONS (4)
  - Nasal septal operation [Unknown]
  - Drug ineffective [Unknown]
  - Infection [Unknown]
  - Flushing [Unknown]
